FAERS Safety Report 15560414 (Version 3)
Quarter: 2019Q1

REPORT INFORMATION
  Report Type: Spontaneous
  Country: FR (occurrence: FR)
  Receive Date: 20181029
  Receipt Date: 20190323
  Transmission Date: 20190417
  Serious: Yes (Hospitalization, Other)
  Sender: FDA-Public Use
  Company Number: FR-ARRAY-2018-04323

PATIENT

DRUGS (9)
  1. BRAFTOVI [Suspect]
     Active Substance: ENCORAFENIB
     Indication: METASTATIC MALIGNANT MELANOMA
     Dosage: 200 MG, QD
     Route: 048
     Dates: start: 20180719, end: 20180802
  2. BRAFTOVI [Suspect]
     Active Substance: ENCORAFENIB
     Dosage: DOSE-ESCALATION
     Route: 048
     Dates: start: 20180810, end: 20180819
  3. MEKTOVI [Suspect]
     Active Substance: BINIMETINIB
     Dosage: 30 MG, BID
     Route: 048
     Dates: start: 20180925, end: 20181010
  4. BRAFTOVI [Suspect]
     Active Substance: ENCORAFENIB
     Dosage: 200 MG, QD
     Route: 048
     Dates: start: 20180806, end: 20180808
  5. MEKTOVI [Suspect]
     Active Substance: BINIMETINIB
     Dosage: 90 MG, QD
     Route: 048
     Dates: start: 20180822, end: 20180829
  6. BRAFTOVI [Suspect]
     Active Substance: ENCORAFENIB
     Dosage: 200 MG, UNK
     Route: 048
     Dates: start: 20180829
  7. KEPPRA [Concomitant]
     Active Substance: LEVETIRACETAM
     Indication: EPILEPSY
     Dosage: 2 DF, QD
     Dates: start: 20170210
  8. MEKTOVI [Suspect]
     Active Substance: BINIMETINIB
     Indication: METASTATIC MALIGNANT MELANOMA
     Dosage: 15 MG, BID
     Route: 048
     Dates: start: 20180719, end: 20180802
  9. BRAFTOVI [Suspect]
     Active Substance: ENCORAFENIB
     Dosage: 300 MG, QD
     Route: 048
     Dates: start: 20180822, end: 20180829

REACTIONS (7)
  - Alopecia [Unknown]
  - Palmoplantar keratoderma [Unknown]
  - Skin papilloma [Unknown]
  - Gamma-glutamyltransferase increased [Recovering/Resolving]
  - Hypocalcaemia [Recovered/Resolved]
  - Angioedema [Recovered/Resolved]
  - Blood alkaline phosphatase increased [Recovering/Resolving]

NARRATIVE: CASE EVENT DATE: 201808
